FAERS Safety Report 8373990-2 (Version None)
Quarter: 2012Q2

REPORT INFORMATION
  Report Type: 
  Country: None (occurrence: None)
  Receive Date: 20120521
  Receipt Date: 20120516
  Transmission Date: 20120825
  Serious: Yes (Other)
  Sender: FDA-Public Use
  Company Number: BR-ABBOTT-12P-020-0917351-00

PATIENT
  Sex: Female
  Weight: 65 kg

DRUGS (12)
  1. SERTRALINE HYDROCHLORIDE [Concomitant]
     Indication: DEPRESSION
     Dosage: 1 TABLET IN THE MORNING
     Route: 048
  2. PROPRANOLOL [Concomitant]
     Indication: HYPERTENSION
     Route: 048
  3. LEVOTHYROXINE SODIUM [Concomitant]
     Indication: THYROID DISORDER
     Dosage: 1 TABLET IN THE MORNING
     Route: 048
  4. AMITRIPTYLINE HCL [Concomitant]
     Indication: DEPRESSION
     Dosage: 1 TABLET IN THE EVENING
     Route: 048
     Dates: start: 20020101
  5. CAPTOPRIL [Concomitant]
     Indication: HYPERTENSION
     Dosage: 1 TABLET IN THE EVENING
     Route: 048
  6. METHOTREXATE [Concomitant]
     Indication: RHEUMATOID ARTHRITIS
     Dosage: 1 TABLET PER WEEK
     Route: 048
     Dates: start: 20030101
  7. METHOTREXATE [Concomitant]
     Indication: ANTIINFLAMMATORY THERAPY
     Route: 048
  8. PREDNISONE [Concomitant]
     Indication: ARTHRALGIA
     Dosage: 1 TABLET IN THE MORNING
     Route: 048
     Dates: start: 20030101
  9. ATENOLOL [Concomitant]
     Indication: HYPERTENSION
     Route: 048
  10. ETORICOXIB [Concomitant]
     Indication: RHEUMATOID ARTHRITIS
     Dosage: 1 TABLET IN THE MORNING
     Route: 048
     Dates: start: 20030101
  11. AMLODIPINE BESYLATE [Concomitant]
     Indication: HYPERTENSION
     Dosage: 1 TABLET IN THE MORNING
     Route: 048
  12. HUMIRA [Suspect]
     Indication: RHEUMATOID ARTHRITIS
     Route: 058
     Dates: start: 20101221

REACTIONS (6)
  - EAR NEOPLASM [None]
  - AMNESIA [None]
  - SWELLING FACE [None]
  - EAR PAIN [None]
  - WEIGHT INCREASED [None]
  - TRISMUS [None]
